FAERS Safety Report 20190045 (Version 1)
Quarter: 2021Q4

REPORT INFORMATION
  Report Type: Spontaneous
  Country: None (occurrence: A1)
  Receive Date: 20211215
  Receipt Date: 20211215
  Transmission Date: 20220303
  Serious: Yes (Hospitalization, Other)
  Sender: FDA-Public Use
  Company Number: A1-Acella Pharmaceuticals, LLC-2123059

PATIENT
  Age: 72 Year
  Sex: Male

DRUGS (1)
  1. GABAPENTIN [Suspect]
     Active Substance: GABAPENTIN
     Indication: Product used for unknown indication
     Route: 065

REACTIONS (12)
  - Myoclonus [Recovered/Resolved]
  - Overdose [Unknown]
  - Septic shock [Unknown]
  - Urinary tract infection [Unknown]
  - Cellulitis [Unknown]
  - Acute kidney injury [Unknown]
  - Confusional state [Unknown]
  - Agitation [Unknown]
  - Asterixis [Unknown]
  - Uraemic encephalopathy [Unknown]
  - Neurotoxicity [Unknown]
  - Mental status changes [Recovered/Resolved]
